FAERS Safety Report 12154605 (Version 4)
Quarter: 2016Q2

REPORT INFORMATION
  Report Type: Report from Study
  Country: CA (occurrence: CA)
  Receive Date: 20160307
  Receipt Date: 20160425
  Transmission Date: 20160815
  Serious: Yes (Death, Hospitalization)
  Sender: FDA-Public Use
  Company Number: PHHY2016CA014043

PATIENT
  Age: 46 Year
  Sex: Female

DRUGS (2)
  1. SANDOSTATIN [Suspect]
     Active Substance: OCTREOTIDE ACETATE
     Indication: NEUROENDOCRINE CARCINOMA METASTATIC
     Dosage: TEST DOSE
     Route: 058
     Dates: start: 20140502, end: 20140502
  2. SANDOSTATIN LAR DEPOT [Suspect]
     Active Substance: OCTREOTIDE ACETATE
     Indication: NEUROENDOCRINE CARCINOMA METASTATIC
     Dosage: 30 MG, QMO (EVERY 4 WEEKS)
     Route: 030
     Dates: start: 20140520, end: 20160325

REACTIONS (5)
  - Death [Fatal]
  - Altered state of consciousness [Unknown]
  - Pain [Recovering/Resolving]
  - Malaise [Unknown]
  - Chromaturia [Unknown]

NARRATIVE: CASE EVENT DATE: 20150127
